FAERS Safety Report 16321689 (Version 2)
Quarter: 2019Q2

REPORT INFORMATION
  Report Type: Report from Study
  Country: AU (occurrence: AU)
  Receive Date: 20190516
  Receipt Date: 20190529
  Transmission Date: 20190711
  Serious: Yes (Hospitalization)
  Sender: FDA-Public Use
  Company Number: AU-VERTEX PHARMACEUTICALS-2019-004154

PATIENT
  Age: 37 Year
  Sex: Male
  Weight: 84 kg

DRUGS (15)
  1. HYPERTONIC SALINE SOLUTION [Concomitant]
     Active Substance: SODIUM CHLORIDE
     Indication: CYSTIC FIBROSIS LUNG
     Dosage: 6 %, BID
     Route: 055
     Dates: start: 2002
  2. SALBUTAMOL [Concomitant]
     Active Substance: ALBUTEROL
     Dosage: 5 MG, PRN
     Route: 055
     Dates: start: 2000
  3. FLUTIFORM [Concomitant]
     Active Substance: FLUTICASONE PROPIONATE\FORMOTEROL FUMARATE
     Indication: CYSTIC FIBROSIS LUNG
     Dosage: 125/5 MG, BID
     Route: 055
     Dates: start: 2014
  4. AZITHROMYCIN ANHYDROUS. [Concomitant]
     Active Substance: AZITHROMYCIN ANHYDROUS
     Dosage: 250 MG, QD
     Route: 048
     Dates: start: 20190207
  5. TRANEXAMIC ACID. [Concomitant]
     Active Substance: TRANEXAMIC ACID
     Indication: HAEMOPTYSIS
     Dosage: 1500 MG, PRN
     Route: 048
     Dates: start: 2010
  6. INNER HEALTH PLUS [Concomitant]
     Dosage: 1 CAP, QD
     Route: 048
     Dates: start: 20181008
  7. PULMOZYME [Concomitant]
     Active Substance: DORNASE ALFA
     Dosage: 2.5 MG, QD
     Route: 055
     Dates: start: 201511
  8. SPIRIVA [Concomitant]
     Active Substance: TIOTROPIUM BROMIDE MONOHYDRATE
     Indication: CYSTIC FIBROSIS LUNG
     Dosage: 2.5 MG, BID
     Route: 055
     Dates: start: 201604
  9. URSOFALK [Concomitant]
     Active Substance: URSODIOL
     Indication: HEPATIC ENZYME INCREASED
     Dosage: 750 MG, BID
     Route: 048
     Dates: start: 2007
  10. VX-661/VX-770 [Suspect]
     Active Substance: IVACAFTOR\TEZACAFTOR
     Indication: CYSTIC FIBROSIS
     Dosage: 50 MG QD/ 75-150 MG, BID
     Route: 048
     Dates: start: 20181019, end: 20181104
  11. VITABDECK [Concomitant]
     Indication: MALABSORPTION
     Dosage: 2 CAPS, QD
     Route: 048
     Dates: start: 2010
  12. VX-659 [Suspect]
     Active Substance: INVESTIGATIONAL PRODUCT
     Indication: CYSTIC FIBROSIS
     Dosage: 120 MG, QD
     Route: 048
     Dates: start: 20181019, end: 20181104
  13. CREON [Concomitant]
     Active Substance: PANCRELIPASE AMYLASE\PANCRELIPASE LIPASE\PANCRELIPASE PROTEASE
     Indication: PANCREATIC FAILURE
     Dosage: 10 CAPS, PRN
     Route: 048
     Dates: start: 1988
  14. MOVICOL [Concomitant]
     Active Substance: POLYETHYLENE GLYCOL 3350\POTASSIUM CHLORIDE\SODIUM BICARBONATE\SODIUM CHLORIDE
     Indication: CONSTIPATION
     Dosage: 1 SACHET, PRN
     Route: 048
     Dates: start: 2010
  15. SALBUTAMOL [Concomitant]
     Active Substance: ALBUTEROL
     Indication: CYSTIC FIBROSIS LUNG
     Dosage: 100 MG, PRN (MDI)
     Route: 055
     Dates: start: 1985

REACTIONS (1)
  - Cholelithiasis [Recovered/Resolved]

NARRATIVE: CASE EVENT DATE: 20190410
